FAERS Safety Report 9109768 (Version 1)
Quarter: 2013Q1

REPORT INFORMATION
  Report Type: Spontaneous
  Country: US (occurrence: US)
  Receive Date: 20130222
  Receipt Date: 20130222
  Transmission Date: 20140127
  Serious: Yes (Other)
  Sender: FDA-Public Use
  Company Number: US-BAYER-2013-021027

PATIENT
  Age: 75 Year
  Sex: Female
  Weight: 45 kg

DRUGS (10)
  1. CITRACAL [Suspect]
     Dosage: UNK UNK, BID
  2. BAYER GENUINE ASPIRIN ORIGINAL STRENGTH [Suspect]
     Dosage: UNK UNK, QD
  3. BAYER ASPIRIN REGIMEN ADULT LOW STRENGTH [Suspect]
     Dosage: 81 MG, QD
  4. LISINOPRIL W/HYDROCHLOROTHIAZIDE [Concomitant]
  5. METOPROLOL [Concomitant]
  6. ALORCON [Concomitant]
  7. ALORCON [Concomitant]
  8. WARFARIN [Concomitant]
  9. CODAPANE [Concomitant]
  10. FINONATON [Concomitant]

REACTIONS (11)
  - Flatulence [Not Recovered/Not Resolved]
  - Therapeutic response unexpected [None]
  - Gastric ulcer [Recovered/Resolved]
  - Gastrooesophageal reflux disease [Not Recovered/Not Resolved]
  - Cerebrovascular accident [Recovered/Resolved]
  - Cardiac pacemaker insertion [Recovered/Resolved]
  - Restless legs syndrome [Not Recovered/Not Resolved]
  - Pain in extremity [Not Recovered/Not Resolved]
  - Sciatica [Not Recovered/Not Resolved]
  - Fall [Not Recovered/Not Resolved]
  - Bone contusion [None]
